FAERS Safety Report 6923181-4 (Version None)
Quarter: 2010Q3

REPORT INFORMATION
  Report Type: 
  Country: None (occurrence: None)
  Receive Date: 20100813
  Receipt Date: 20100809
  Transmission Date: 20110219
  Serious: Yes (Death)
  Sender: FDA-Public Use
  Company Number: US-ROCHE-708917

PATIENT
  Sex: Male
  Weight: 84.4 kg

DRUGS (3)
  1. CAPECITABINE [Suspect]
     Route: 048
     Dates: start: 20100219, end: 20100604
  2. CAPECITABINE [Suspect]
     Route: 048
     Dates: start: 20100424, end: 20100528
  3. TARCEVA [Suspect]
     Route: 065
     Dates: start: 20100424, end: 20100528

REACTIONS (1)
  - CEREBROVASCULAR ACCIDENT [None]
